FAERS Safety Report 18861013 (Version 7)
Quarter: 2021Q3

REPORT INFORMATION
  Report Type: Report from Study
  Country: US (occurrence: US)
  Receive Date: 20210208
  Receipt Date: 20210823
  Transmission Date: 20211014
  Serious: Yes (Other)
  Sender: FDA-Public Use
  Company Number: NVSC2021US022991

PATIENT
  Sex: Male

DRUGS (2)
  1. ENTRESTO [Suspect]
     Active Substance: SACUBITRIL\VALSARTAN
     Indication: PRODUCT USED FOR UNKNOWN INDICATION
     Dosage: 100 MG, BID (49/51MG)
     Route: 048
     Dates: start: 202011
  2. ENTRESTO [Suspect]
     Active Substance: SACUBITRIL\VALSARTAN
     Dosage: 200 MG, BID (97/103MG) (DOSE INCREASED)
     Route: 048

REACTIONS (8)
  - Oedema peripheral [Recovering/Resolving]
  - Hypertension [Not Recovered/Not Resolved]
  - Product dose omission issue [Unknown]
  - Drug ineffective [Recovering/Resolving]
  - Feeling abnormal [Unknown]
  - Flatulence [Unknown]
  - Skin cancer [Unknown]
  - Asthenia [Unknown]
